FAERS Safety Report 19928241 (Version 1)
Quarter: 2021Q4

REPORT INFORMATION
  Report Type: Report from Study
  Country: FR (occurrence: FR)
  Receive Date: 20211007
  Receipt Date: 20211007
  Transmission Date: 20220303
  Serious: Yes (Hospitalization, Other)
  Sender: FDA-Public Use
  Company Number: FR-ALS-000414

PATIENT
  Age: 81 Year
  Sex: Male

DRUGS (1)
  1. METFORMIN [Suspect]
     Active Substance: METFORMIN HYDROCHLORIDE
     Indication: Type 2 diabetes mellitus
     Route: 065

REACTIONS (8)
  - Anaemia megaloblastic [Unknown]
  - Thrombocytopenia [Unknown]
  - Pernicious anaemia [Unknown]
  - Vitiligo [Unknown]
  - Chronic gastritis [Unknown]
  - Dry age-related macular degeneration [Unknown]
  - Haemolysis [Unknown]
  - Iron overload [Unknown]
